FAERS Safety Report 4773020-5 (Version None)
Quarter: 2005Q3

REPORT INFORMATION
  Report Type: 
  Country: None (occurrence: None)
  Receive Date: 20050919
  Receipt Date: 20050905
  Transmission Date: 20060218
  Serious: Yes (Other)
  Sender: FDA-Public Use
  Company Number: 2005AC01327

PATIENT
  Age: 79 Year
  Sex: Male

DRUGS (5)
  1. ROPIVACAINE [Suspect]
     Indication: ANAESTHESIA
     Route: 008
  2. VALACYCLOVIR HCL [Concomitant]
     Indication: HERPES ZOSTER
     Route: 048
  3. IMIPRAMINE [Concomitant]
     Indication: POST HERPETIC NEURALGIA
     Route: 048
  4. CARBAMAZEPINE [Concomitant]
     Indication: POST HERPETIC NEURALGIA
     Route: 048
  5. TRAMADOL [Concomitant]
     Indication: POST HERPETIC NEURALGIA
     Route: 048

REACTIONS (2)
  - CHOLECYSTITIS [None]
  - INSOMNIA [None]
